FAERS Safety Report 14204524 (Version 3)
Quarter: 2018Q1

REPORT INFORMATION
  Report Type: Report from Study
  Country: US (occurrence: US)
  Receive Date: 20171120
  Receipt Date: 20180130
  Transmission Date: 20180508
  Serious: Yes (Hospitalization, Other)
  Sender: FDA-Public Use
  Company Number: US-AMGEN-USASL2017172500

PATIENT
  Age: 72 Year
  Sex: Female

DRUGS (1)
  1. REPATHA [Suspect]
     Active Substance: EVOLOCUMAB
     Indication: BLOOD CHOLESTEROL INCREASED
     Dosage: 140 MG, Q2WK
     Route: 065
     Dates: start: 20151214

REACTIONS (7)
  - Meniscus injury [Unknown]
  - Lower limb fracture [Recovering/Resolving]
  - Weight bearing difficulty [Recovered/Resolved]
  - Intentional product misuse [Unknown]
  - Gallbladder disorder [Unknown]
  - Confusional state [Unknown]
  - Sepsis [Unknown]

NARRATIVE: CASE EVENT DATE: 2017
